FAERS Safety Report 4742696-0 (Version None)
Quarter: 2005Q3

REPORT INFORMATION
  Report Type: 
  Country: None (occurrence: None)
  Receive Date: 20050804
  Receipt Date: 20050518
  Transmission Date: 20060218
  Serious: No
  Sender: FDA-Public Use
  Company Number: FACT0500315

PATIENT
  Age: 68 Year
  Sex: Female
  Weight: 62.6 kg

DRUGS (4)
  1. FACTIVE [Suspect]
     Indication: RESPIRATORY TRACT INFECTION BACTERIAL
     Dosage: 320 MG, QD, ORAL
     Route: 048
     Dates: start: 20050328, end: 20050329
  2. CRESTOR [Concomitant]
  3. ACTOS/CAN/(PIOGLITAZONE HYDROCHLORIDE) [Concomitant]
  4. TRICOR [Concomitant]

REACTIONS (1)
  - RASH GENERALISED [None]
